FAERS Safety Report 8153058-0 (Version None)
Quarter: 2012Q1

REPORT INFORMATION
  Report Type: 
  Country: None (occurrence: None)
  Receive Date: 20120221
  Receipt Date: 20120216
  Transmission Date: 20120608
  Serious: Yes (Other)
  Sender: FDA-Public Use
  Company Number: US-PFIZER INC-2012042556

PATIENT
  Sex: Male
  Weight: 86 kg

DRUGS (3)
  1. CHANTIX [Suspect]
     Indication: SMOKING CESSATION THERAPY
     Dosage: 0.5 MG, DAILY
     Route: 048
     Dates: start: 20110101
  2. CHANTIX [Suspect]
     Dosage: UNK
     Route: 048
     Dates: end: 20110101
  3. IBUPROFEN [Concomitant]
     Dosage: UNK, AS NEEDED

REACTIONS (1)
  - RENAL PAIN [None]
